FAERS Safety Report 21863480 (Version 4)
Quarter: 2023Q1

REPORT INFORMATION
  Report Type: Report from Study
  Country: US (occurrence: US)
  Receive Date: 20230115
  Receipt Date: 20230316
  Transmission Date: 20230417
  Serious: No
  Sender: FDA-Public Use
  Company Number: US-002147023-NVSC2023US007913

PATIENT
  Sex: Female

DRUGS (4)
  1. PROMACTA [Suspect]
     Active Substance: ELTROMBOPAG OLAMINE
     Indication: Immune thrombocytopenia
     Dosage: 50 MG, QD
     Route: 048
  2. PROMACTA [Suspect]
     Active Substance: ELTROMBOPAG OLAMINE
     Dosage: 25 MG, QD
     Route: 065
  3. PROMACTA [Suspect]
     Active Substance: ELTROMBOPAG OLAMINE
     Dosage: 75 MG
     Route: 065
  4. PROMACTA [Suspect]
     Active Substance: ELTROMBOPAG OLAMINE
     Dosage: 100 MG
     Route: 065

REACTIONS (9)
  - Compression fracture [Unknown]
  - Osteoporosis [Unknown]
  - Spinal stenosis [Unknown]
  - Platelet count decreased [Unknown]
  - Joint swelling [Unknown]
  - Alopecia [Unknown]
  - Back pain [Not Recovered/Not Resolved]
  - Platelet count increased [Unknown]
  - Wrong technique in product usage process [Unknown]
